FAERS Safety Report 20375393 (Version 1)
Quarter: 2022Q1

REPORT INFORMATION
  Report Type: Spontaneous
  Country: GB (occurrence: US)
  Receive Date: 20220125
  Receipt Date: 20220125
  Transmission Date: 20220423
  Serious: Yes (Other)
  Sender: FDA-Public Use
  Company Number: GB-GLAXOSMITHKLINE-PHFR1985GB00007

PATIENT
  Sex: Female

DRUGS (12)
  1. DICLOFENAC SODIUM [Suspect]
     Active Substance: DICLOFENAC SODIUM
     Dosage: 0 OT, UNK
     Dates: start: 19830704, end: 19830804
  2. DIGOXIN [Suspect]
     Active Substance: DIGOXIN
     Dosage: 0 OT, UNK
  3. CYCLOPENTHIAZIDE\POTASSIUM CHLORIDE [Suspect]
     Active Substance: CYCLOPENTHIAZIDE\POTASSIUM CHLORIDE
     Dosage: 0 OT, UNK
  4. RANITIDINE [Suspect]
     Active Substance: RANITIDINE
     Indication: Dyspepsia
     Dosage: 150 MG, QD
     Dates: start: 198401, end: 201401
  5. RANITIDINE [Suspect]
     Active Substance: RANITIDINE
     Indication: Abdominal discomfort
  6. RANITIDINE [Suspect]
     Active Substance: RANITIDINE
     Indication: Dyspepsia
     Dosage: 150 MG, QD
     Dates: start: 198401, end: 201401
  7. RANITIDINE [Suspect]
     Active Substance: RANITIDINE
     Indication: Abdominal discomfort
  8. VITAMINS NOS [Suspect]
     Active Substance: VITAMINS
     Dosage: 0 OT, UNK
  9. ZANTAC [Suspect]
     Active Substance: RANITIDINE HYDROCHLORIDE
     Indication: Dyspepsia
     Dosage: 150 MG, QD
     Dates: start: 198401, end: 201401
  10. ZANTAC [Suspect]
     Active Substance: RANITIDINE HYDROCHLORIDE
     Indication: Abdominal discomfort
  11. ZANTAC [Suspect]
     Active Substance: RANITIDINE HYDROCHLORIDE
     Indication: Abdominal discomfort
  12. ZANTAC [Suspect]
     Active Substance: RANITIDINE HYDROCHLORIDE
     Indication: Dyspepsia
     Dosage: 150 MG, QD
     Dates: start: 198401, end: 201401

REACTIONS (2)
  - Acute kidney injury [Unknown]
  - Breast cancer [Unknown]
